FAERS Safety Report 4365599-2 (Version None)
Quarter: 2004Q2

REPORT INFORMATION
  Report Type: 
  Country: None (occurrence: None)
  Receive Date: 20040526
  Receipt Date: 20030407
  Transmission Date: 20050107
  Serious: Yes (Disabling, Other)
  Sender: FDA-Public Use
  Company Number: US-MERCK-0304USA00806

PATIENT
  Age: 41 Year
  Sex: Female
  Weight: 57 kg

DRUGS (3)
  1. ASPIRIN [Concomitant]
     Route: 065
  2. VIOXX [Suspect]
     Indication: ARTHRALGIA
     Route: 048
     Dates: end: 20010101
  3. VIOXX [Suspect]
     Indication: SYSTEMIC LUPUS ERYTHEMATOSUS
     Route: 048
     Dates: end: 20010101

REACTIONS (17)
  - ALCOHOLISM [None]
  - CHLOASMA [None]
  - CHRONIC SINUSITIS [None]
  - CORONARY ARTERY DISEASE [None]
  - DEPRESSION [None]
  - DIFFICULTY IN WALKING [None]
  - DRUG DEPENDENCE [None]
  - EMOTIONAL DISTRESS [None]
  - EUSTACHIAN TUBE DISORDER [None]
  - HYPERCHOLESTEROLAEMIA [None]
  - INJURY [None]
  - INTERMITTENT CLAUDICATION [None]
  - LIMB DISCOMFORT [None]
  - MUSCLE SPASMS [None]
  - MYOCARDIAL INFARCTION [None]
  - PERIPHERAL VASCULAR DISORDER [None]
  - SINUSITIS [None]
